FAERS Safety Report 23218021 (Version 3)
Quarter: 2024Q1

REPORT INFORMATION
  Report Type: Report from Study
  Country: US (occurrence: None)
  Receive Date: 20231122
  Receipt Date: 20240221
  Transmission Date: 20240410
  Serious: Yes (Life-Threatening, Hospitalization, Other)
  Sender: FDA-Public Use
  Company Number: 2023A262830

PATIENT

DRUGS (1)
  1. CALQUENCE [Suspect]
     Active Substance: ACALABRUTINIB
     Indication: Chronic lymphocytic leukaemia
     Route: 048

REACTIONS (9)
  - Gait inability [Unknown]
  - Atrial fibrillation [Unknown]
  - COVID-19 [Unknown]
  - Malaise [Unknown]
  - Disease complication [Unknown]
  - Flatulence [Unknown]
  - Gastric pH decreased [Unknown]
  - Oedema peripheral [Unknown]
  - Asthenia [Unknown]
